FAERS Safety Report 5631589-2 (Version None)
Quarter: 2008Q1

REPORT INFORMATION
  Report Type: 
  Country: None (occurrence: None)
  Receive Date: 20080215
  Receipt Date: 20080211
  Transmission Date: 20080703
  Serious: Yes (Other)
  Sender: FDA-Public Use
  Company Number: 2008003616

PATIENT
  Age: 57 Year
  Sex: Male
  Weight: 1138.5285 kg

DRUGS (1)
  1. ROGAINE [Suspect]
     Indication: ALOPECIA
     Dosage: 1/2 CAPFUL 2 TIMES A DAY,OPHTHALMIC
     Route: 047
     Dates: start: 20071201

REACTIONS (3)
  - ACCIDENTAL EXPOSURE [None]
  - EYE IRRITATION [None]
  - PHARMACEUTICAL PRODUCT COMPLAINT [None]
